FAERS Safety Report 6173679-4 (Version None)
Quarter: 2009Q2

REPORT INFORMATION
  Report Type: 
  Country: None (occurrence: None)
  Receive Date: 20090429
  Receipt Date: 20090429
  Transmission Date: 20091009
  Serious: Yes (Hospitalization)
  Sender: FDA-Public Use
  Company Number: None

PATIENT
  Age: 60 Year
  Sex: Male

DRUGS (1)
  1. MOXIFLOXACIN HCL [Suspect]
     Dosage: 400 MG EVERY DAY PO
     Route: 048
     Dates: start: 20090420, end: 20090421

REACTIONS (1)
  - ANGIOEDEMA [None]
